FAERS Safety Report 4937747-4 (Version None)
Quarter: 2006Q1

REPORT INFORMATION
  Report Type: 
  Country: None (occurrence: None)
  Receive Date: 20060302
  Receipt Date: 20060221
  Transmission Date: 20060701
  Serious: Yes (Disabling)
  Sender: FDA-Public Use
  Company Number: 2006025378

PATIENT
  Age: 68 Year
  Sex: Female
  Weight: 89 kg

DRUGS (4)
  1. DOXAZOSIN (DOXAZOSIN) [Suspect]
     Indication: HYPERTENSION
     Dosage: 8 MG (8 MG, DAILY INTERVAL: EVERY  DAY), ORAL
     Route: 048
     Dates: start: 20050101, end: 20060106
  2. FUROSEMIDE [Concomitant]
  3. SYMBICORT (BUDESONIDE, FORMOTEROL FUMARATE) [Concomitant]
  4. IPRATROPIUM BROMIDE [Concomitant]

REACTIONS (2)
  - HEPATITIS [None]
  - LEUKOCYTOCLASTIC VASCULITIS [None]
